FAERS Safety Report 6254030-8 (Version None)
Quarter: 2009Q3

REPORT INFORMATION
  Report Type: 
  Country: None (occurrence: None)
  Receive Date: 20090702
  Receipt Date: 20090623
  Transmission Date: 20100115
  Serious: Yes (Hospitalization)
  Sender: FDA-Public Use
  Company Number: JP-ROCHE-641021

PATIENT
  Age: 2 Month
  Sex: Male

DRUGS (3)
  1. ROCEPHIN [Suspect]
     Indication: MENINGITIS BACTERIAL
     Route: 042
     Dates: start: 20090401
  2. ROCEPHIN [Suspect]
     Route: 042
     Dates: start: 20090501
  3. MEROPEN [Concomitant]
     Route: 065
     Dates: start: 20090401

REACTIONS (3)
  - CALCULUS URINARY [None]
  - CHOLELITHIASIS [None]
  - LIVER DISORDER [None]
